FAERS Safety Report 6105209-7 (Version None)
Quarter: 2009Q1

REPORT INFORMATION
  Report Type: 
  Country: None (occurrence: None)
  Receive Date: 20090306
  Receipt Date: 20090203
  Transmission Date: 20090719
  Serious: No
  Sender: FDA-Public Use
  Company Number: US-BAYER-200813593BCC

PATIENT
  Age: 69 Year
  Sex: Female
  Weight: 52 kg

DRUGS (2)
  1. ALEVE [Suspect]
     Indication: HYPERSENSITIVITY
     Dosage: TOTAL DAILY DOSE: 880 MG  UNIT DOSE: 220 MG
     Route: 048
     Dates: start: 20080829, end: 20080901
  2. KEFLEX [Concomitant]

REACTIONS (1)
  - BLOOD PRESSURE INCREASED [None]
